FAERS Safety Report 23788595 (Version 1)
Quarter: 2024Q2

REPORT INFORMATION
  Report Type: Spontaneous
  Country: US (occurrence: None)
  Receive Date: 20240425
  Receipt Date: 20240425
  Transmission Date: 20240716
  Serious: No
  Sender: FDA-Public Use
  Company Number: None

PATIENT
  Age: 71 Year
  Sex: Female
  Weight: 96.62 kg

DRUGS (11)
  1. INCLISIRAN [Suspect]
     Active Substance: INCLISIRAN
     Indication: Blood cholesterol increased
     Dosage: INJECTION
     Dates: start: 20240305, end: 20240305
  2. INCLISIRAN [Suspect]
     Active Substance: INCLISIRAN
     Indication: Blood triglycerides increased
  3. LEVOTHYROXINE [Concomitant]
     Active Substance: LEVOTHYROXINE\LEVOTHYROXINE SODIUM
  4. LISNOPRIL [Concomitant]
  5. METOPROPALOL TARTRATE [Concomitant]
  6. SPIRONOLACTONE [Concomitant]
     Active Substance: SPIRONOLACTONE
  7. DAILY VITAMIN [Concomitant]
  8. NM-6603 [Concomitant]
     Active Substance: NM-6603
  9. MAGNESIUM [Concomitant]
     Active Substance: MAGNESIUM
  10. BLACKBERRY [Concomitant]
     Active Substance: BLACKBERRY
  11. DIGEST AIDE [Concomitant]

REACTIONS (3)
  - Back pain [None]
  - Arthralgia [None]
  - Headache [None]

NARRATIVE: CASE EVENT DATE: 20240305
